FAERS Safety Report 7271534-X (Version None)
Quarter: 2011Q1

REPORT INFORMATION
  Report Type: 
  Country: None (occurrence: None)
  Receive Date: 20110203
  Receipt Date: 20110119
  Transmission Date: 20110831
  Serious: Yes (Other)
  Sender: FDA-Public Use
  Company Number: TR-RANBAXY-2010RR-39980

PATIENT
  Age: 40 Year
  Sex: Male

DRUGS (3)
  1. TOPIRAMATE [Suspect]
     Indication: MIGRAINE PROPHYLAXIS
     Dosage: 100 MG, UNK
  2. ZOLMITRIPTAN [Concomitant]
  3. TOPIRAMATE [Suspect]
     Dosage: 200 MG, UNK

REACTIONS (4)
  - PARAESTHESIA [None]
  - FATIGUE [None]
  - SPEECH DISORDER [None]
  - ANORGASMIA [None]
